FAERS Safety Report 5498016-X (Version None)
Quarter: 2007Q4

REPORT INFORMATION
  Report Type: 
  Country: None (occurrence: None)
  Receive Date: 20071018
  Receipt Date: 20060923
  Transmission Date: 20080405
  Serious: Yes (Other)
  Sender: FDA-Public Use
  Company Number: 2006097974

PATIENT
  Age: 31 Year
  Sex: Male
  Weight: 61.2356 kg

DRUGS (16)
  1. NEURONTIN [Suspect]
     Indication: APRAXIA
     Dosage: (1 IN 6 HR)
     Dates: start: 20050101
  2. NEURONTIN [Suspect]
     Indication: ATAXIA
     Dosage: (1 IN 6 HR)
     Dates: start: 20050101
  3. NEURONTIN [Suspect]
     Indication: BALANCE DISORDER
     Dosage: (1 IN 6 HR)
     Dates: start: 20050101
  4. NEURONTIN [Suspect]
     Indication: CONVULSION
     Dosage: (1 IN 6 HR)
     Dates: start: 20050101
  5. NEURONTIN [Suspect]
     Indication: ILL-DEFINED DISORDER
     Dosage: (1 IN 6 HR)
     Dates: start: 20050101
  6. NEURONTIN [Suspect]
     Indication: MOVEMENT DISORDER
     Dosage: (1 IN 6 HR)
     Dates: start: 20050101
  7. NEURONTIN [Suspect]
     Indication: MUSCLE SPASMS
     Dosage: (1 IN 6 HR)
     Dates: start: 20050101
  8. REQUIP [Concomitant]
  9. ATIVAN [Concomitant]
  10. MIDODRINE HYDROCHLORIDE [Concomitant]
  11. FLORINEF [Concomitant]
  12. FLEXERIL [Concomitant]
  13. NAMENDA [Concomitant]
  14. ARICEPT [Concomitant]
  15. ATENOLOL [Concomitant]
  16. ALL OTHER THERAPEUTIC PRODUCTS (ALL OTHER THERAPEUTIC PRODUCTS) [Concomitant]

REACTIONS (6)
  - APRAXIA [None]
  - COGNITIVE DISORDER [None]
  - CONVULSION [None]
  - DRUG EFFECT DECREASED [None]
  - MUSCLE SPASMS [None]
  - WEIGHT INCREASED [None]
